FAERS Safety Report 23166913 (Version 1)
Quarter: 2023Q4

REPORT INFORMATION
  Report Type: Spontaneous
  Country: FR (occurrence: FR)
  Receive Date: 20231109
  Receipt Date: 20231109
  Transmission Date: 20240109
  Serious: Yes (Death, Life-Threatening, Hospitalization, Other)
  Sender: FDA-Public Use
  Company Number: US-ROCHE-3246507

PATIENT
  Age: 62 Year
  Sex: Male
  Weight: 89 kg

DRUGS (55)
  1. OXALIPLATIN [Suspect]
     Active Substance: OXALIPLATIN
     Indication: Colorectal cancer
     Dosage: 165 MILLIGRAM
     Route: 065
     Dates: start: 20220811, end: 20220825
  2. OXALIPLATIN [Suspect]
     Active Substance: OXALIPLATIN
     Dosage: 165 MILLIGRAM
     Route: 065
     Dates: start: 20220825, end: 20220825
  3. OXALIPLATIN [Suspect]
     Active Substance: OXALIPLATIN
     Dosage: 165 MILLIGRAM
     Route: 065
     Dates: start: 20220629, end: 20220728
  4. OXALIPLATIN [Suspect]
     Active Substance: OXALIPLATIN
     Dosage: 82.5 MILLIGRAM
     Route: 065
     Dates: start: 20220908, end: 20220908
  5. OXALIPLATIN [Suspect]
     Active Substance: OXALIPLATIN
     Dosage: 165 MILLIGRAM
     Route: 065
     Dates: start: 20220614, end: 20220712
  6. ESOMEPRAZOLE [Suspect]
     Active Substance: ESOMEPRAZOLE
     Indication: Product used for unknown indication
     Dosage: UNK UNK, UNK
     Route: 065
     Dates: start: 20220719, end: 20220728
  7. ZIMBERELIMAB [Suspect]
     Active Substance: ZIMBERELIMAB
     Indication: Colorectal cancer
     Dosage: 480 MILLIGRAM
     Route: 065
     Dates: start: 20220712, end: 20220712
  8. ZIMBERELIMAB [Suspect]
     Active Substance: ZIMBERELIMAB
     Dosage: 480 MILLIGRAM
     Route: 065
     Dates: start: 20220614, end: 20220614
  9. ZIMBERELIMAB [Suspect]
     Active Substance: ZIMBERELIMAB
     Dosage: 480 MILLIGRAM
     Route: 065
     Dates: start: 20220811, end: 20220811
  10. ZIMBERELIMAB [Suspect]
     Active Substance: ZIMBERELIMAB
     Dosage: 480 MILLIGRAM
     Route: 065
     Dates: start: 20220908, end: 20220908
  11. BEVACIZUMAB [Suspect]
     Active Substance: BEVACIZUMAB
     Indication: Colorectal cancer
     Dosage: 437 MILLIGRAM
     Route: 065
     Dates: start: 20220825, end: 20220825
  12. BEVACIZUMAB [Suspect]
     Active Substance: BEVACIZUMAB
     Dosage: 425 MILLIGRAM
     Route: 065
     Dates: start: 20220908, end: 20220908
  13. BEVACIZUMAB [Suspect]
     Active Substance: BEVACIZUMAB
     Dosage: 425 MILLIGRAM
     Route: 065
     Dates: start: 20220811, end: 20220811
  14. BEVACIZUMAB [Suspect]
     Active Substance: BEVACIZUMAB
     Dosage: 188 MILLIGRAM
     Route: 065
     Dates: start: 20220728, end: 20220728
  15. BEVACIZUMAB [Suspect]
     Active Substance: BEVACIZUMAB
     Dosage: 450 MILLIGRAM
     Route: 065
     Dates: start: 20220712, end: 20220712
  16. BEVACIZUMAB [Suspect]
     Active Substance: BEVACIZUMAB
     Dosage: 450 MILLIGRAM
     Route: 065
     Dates: start: 20220629
  17. BEVACIZUMAB [Suspect]
     Active Substance: BEVACIZUMAB
     Dosage: 398 MILLIGRAM
     Route: 065
     Dates: start: 20220922, end: 20220922
  18. BEVACIZUMAB [Suspect]
     Active Substance: BEVACIZUMAB
     Dosage: 475 MILLIGRAM
     Route: 065
     Dates: start: 20220614, end: 20220614
  19. ONDANSETRON [Suspect]
     Active Substance: ONDANSETRON
     Indication: Product used for unknown indication
     Dosage: UNK UNK, UNK
     Route: 065
     Dates: start: 20220614
  20. LEUCOVORIN [Suspect]
     Active Substance: LEUCOVORIN\LEUCOVORIN CALCIUM
     Indication: Colorectal cancer
     Dosage: 400 MILLIGRAM
     Route: 065
     Dates: start: 20220728
  21. LEUCOVORIN [Suspect]
     Active Substance: LEUCOVORIN\LEUCOVORIN CALCIUM
     Dosage: 99 MILLIGRAM
     Route: 065
     Dates: start: 20220922, end: 20220922
  22. LEUCOVORIN [Suspect]
     Active Substance: LEUCOVORIN\LEUCOVORIN CALCIUM
     Dosage: 400 MILLIGRAM
     Route: 065
     Dates: start: 20220825, end: 20220825
  23. LEUCOVORIN [Suspect]
     Active Substance: LEUCOVORIN\LEUCOVORIN CALCIUM
     Dosage: 99 MILLIGRAM
     Route: 065
     Dates: start: 20220908, end: 20220908
  24. LEUCOVORIN [Suspect]
     Active Substance: LEUCOVORIN\LEUCOVORIN CALCIUM
     Dosage: 400 MILLIGRAM
     Route: 065
     Dates: start: 20220811, end: 20220825
  25. LEUCOVORIN [Suspect]
     Active Substance: LEUCOVORIN\LEUCOVORIN CALCIUM
     Dosage: 400 MILLIGRAM
     Route: 065
     Dates: start: 20220614, end: 20220712
  26. ETRUMADENANT [Suspect]
     Active Substance: ETRUMADENANT
     Indication: Colorectal cancer
     Dosage: 150 MILLIGRAM
     Route: 048
     Dates: start: 20220616, end: 20220711
  27. ETRUMADENANT [Suspect]
     Active Substance: ETRUMADENANT
     Dosage: 150 MILLIGRAM
     Route: 048
     Dates: start: 20220614, end: 20220624
  28. ETRUMADENANT [Suspect]
     Active Substance: ETRUMADENANT
     Dosage: 150 MILLIGRAM
     Route: 048
     Dates: start: 20220908, end: 20221005
  29. ETRUMADENANT [Suspect]
     Active Substance: ETRUMADENANT
     Dosage: 150 MILLIGRAM
     Route: 048
     Dates: start: 20220712, end: 20220810
  30. ETRUMADENANT [Suspect]
     Active Substance: ETRUMADENANT
     Dosage: 150 MILLIGRAM
     Route: 048
     Dates: start: 20220811, end: 20220907
  31. DONORMYL [Concomitant]
     Indication: Product used for unknown indication
     Dosage: UNK UNK, UNK
     Route: 065
     Dates: start: 20210701
  32. HYDROCORTISONE [Concomitant]
     Active Substance: HYDROCORTISONE
     Indication: Product used for unknown indication
     Dosage: UNK
     Route: 065
     Dates: start: 20220825, end: 20220922
  33. ACETAMINOPHEN [Concomitant]
     Active Substance: ACETAMINOPHEN
     Indication: Product used for unknown indication
     Dosage: UNK UNK, UNK
     Route: 065
     Dates: start: 20200701
  34. ARTISIAL [Concomitant]
     Active Substance: CALCIUM CHLORIDE\MAGNESIUM CHLORIDE\POTASSIUM CHLORIDE\POTASSIUM PHOSPHATE, DIBASIC\POTASSIUM PHOSPH
     Indication: Product used for unknown indication
     Dosage: UNK
     Route: 065
     Dates: start: 20220811
  35. TRAMADOL [Concomitant]
     Active Substance: TRAMADOL\TRAMADOL HYDROCHLORIDE
     Indication: Prophylaxis
     Dosage: UNK UNK, UNK
     Route: 065
     Dates: start: 20220615
  36. LANSOPRAZOLE [Concomitant]
     Active Substance: LANSOPRAZOLE
     Indication: Product used for unknown indication
     Dosage: UNK
     Route: 065
     Dates: start: 20220728
  37. PEGFILGRASTIM [Concomitant]
     Active Substance: PEGFILGRASTIM
     Indication: Product used for unknown indication
     Dosage: UNK
     Route: 065
     Dates: start: 20220828, end: 20220925
  38. RACECADOTRIL [Concomitant]
     Active Substance: RACECADOTRIL
     Indication: Prophylaxis
     Dosage: UNK UNK, UNK
     Route: 065
     Dates: start: 20220613
  39. EPOETIN ZETA [Concomitant]
     Active Substance: ERYTHROPOIETIN
     Indication: Product used for unknown indication
     Dosage: UNK
     Route: 065
     Dates: start: 20220908, end: 20221013
  40. FLUOROURACIL [Suspect]
     Active Substance: FLUOROURACIL
     Indication: Colorectal cancer
     Dosage: 4775 MILLIGRAM
     Route: 065
     Dates: start: 20220825, end: 20220825
  41. FLUOROURACIL [Suspect]
     Active Substance: FLUOROURACIL
     Dosage: 3950 MILLIGRAM
     Route: 065
     Dates: start: 20220908, end: 20220908
  42. FLUOROURACIL [Suspect]
     Active Substance: FLUOROURACIL
     Dosage: 4800 MILLIGRAM
     Route: 065
     Dates: start: 20220629, end: 20220728
  43. FLUOROURACIL [Suspect]
     Active Substance: FLUOROURACIL
     Dosage: 4800 MILLIGRAM
     Route: 065
     Dates: start: 20220614, end: 20220614
  44. FLUOROURACIL [Suspect]
     Active Substance: FLUOROURACIL
     Dosage: 800 MILLIGRAM
     Route: 065
     Dates: start: 20220614, end: 20220908
  45. METOCLOPRAMIDE [Concomitant]
     Active Substance: METOCLOPRAMIDE
     Indication: Prophylaxis
     Dosage: UNK UNK, UNK
     Route: 065
     Dates: start: 20220614
  46. LIDOCAINE [Concomitant]
     Active Substance: LIDOCAINE
     Indication: Product used for unknown indication
     Dosage: UNK
     Route: 065
     Dates: start: 20220811
  47. LOPERAMIDE [Concomitant]
     Active Substance: LOPERAMIDE
     Indication: Prophylaxis
     Dosage: UNK UNK, UNK
     Route: 065
     Dates: start: 20220613
  48. SODIUM BICARBONATE [Concomitant]
     Active Substance: SODIUM BICARBONATE
     Indication: Prophylaxis
     Dosage: UNK UNK, UNK
     Route: 065
     Dates: start: 20220613
  49. PREDNISOLONE [Concomitant]
     Active Substance: PREDNISOLONE
     Indication: Product used for unknown indication
     Dosage: UNK
     Route: 065
     Dates: start: 20220811
  50. COVID-19 VACCINE [Concomitant]
     Indication: Prophylaxis
     Dosage: UNK UNK, UNK
     Route: 065
     Dates: start: 20220630, end: 20220630
  51. APREPITANT [Concomitant]
     Active Substance: APREPITANT
     Indication: Premedication
     Dosage: UNK UNK, UNK
     Route: 065
     Dates: start: 20220613
  52. MONTMORILLONITE [Concomitant]
     Active Substance: MONTMORILLONITE
     Indication: Prophylaxis
     Dosage: UNK UNK, UNK
     Route: 065
     Dates: start: 20220613
  53. METHYLPREDNISOLONE [Concomitant]
     Active Substance: METHYLPREDNISOLONE
     Indication: Product used for unknown indication
     Dosage: UNK
     Route: 065
     Dates: start: 20220825, end: 20220908
  54. POLYETHYLENE GLYCOLS [Concomitant]
     Active Substance: POLYETHYLENE GLYCOLS
     Indication: Product used for unknown indication
     Dosage: UNK UNK, UNK
     Route: 065
     Dates: start: 20220301
  55. FILGRASTIM [Concomitant]
     Active Substance: FILGRASTIM
     Indication: Product used for unknown indication
     Dosage: UNK UNK, UNK
     Route: 065
     Dates: start: 20220713, end: 20220727

REACTIONS (2)
  - Disease progression [Fatal]
  - Hypersensitivity [Fatal]

NARRATIVE: CASE EVENT DATE: 20220712
